APPROVED DRUG PRODUCT: MIDAZOLAM HYDROCHLORIDE
Active Ingredient: MIDAZOLAM HYDROCHLORIDE
Strength: EQ 1MG BASE/ML
Dosage Form/Route: INJECTABLE;INJECTION
Application: A090696 | Product #001 | TE Code: AP
Applicant: GLAND PHARMA LTD
Approved: Feb 29, 2012 | RLD: No | RS: No | Type: RX